FAERS Safety Report 9778774 (Version 1)
Quarter: 2013Q4

REPORT INFORMATION
  Report Type: Spontaneous
  Country: IT (occurrence: IT)
  Receive Date: 20131223
  Receipt Date: 20131223
  Transmission Date: 20140711
  Serious: Yes (Hospitalization)
  Sender: FDA-Public Use
  Company Number: IT-TEVA-450908ISR

PATIENT
  Age: 19 Year
  Sex: Female
  Weight: 50 kg

DRUGS (6)
  1. GABITRIL [Suspect]
     Dosage: 4 DOSAGE FORMS DAILY;
     Route: 048
     Dates: start: 20120718, end: 20120718
  2. GABITRIL [Suspect]
     Dates: end: 20120717
  3. GABITRIL [Suspect]
     Dates: start: 20120717
  4. SERTRALINA CLORIDRATO [Concomitant]
  5. QUETIAPINA FUMARATO [Concomitant]
  6. SUBOXONE 2MG/0.5MG [Concomitant]
     Dosage: SUBLINGUAL TABLET

REACTIONS (1)
  - Dyskinesia [Recovered/Resolved]
